FAERS Safety Report 8900716 (Version 2)
Quarter: 2013Q1

REPORT INFORMATION
  Report Type: Report from Study
  Country: US (occurrence: US)
  Receive Date: 20121109
  Receipt Date: 20130103
  Transmission Date: 20140127
  Serious: No
  Sender: FDA-Public Use
  Company Number: US-VERTEX PHARMACEUTICAL INC.-2012-024284

PATIENT
  Age: 38 None
  Sex: Male
  Weight: 82 kg

DRUGS (6)
  1. VX-950 (TELAPREVIR) [Suspect]
     Indication: HEPATITIS C
     Dosage: 750 MG, TID
     Route: 048
  2. PEGASYS [Suspect]
     Indication: HEPATITIS C
     Dosage: 180 ?G, UNK
  3. RIBAVIRIN [Suspect]
     Indication: HEPATITIS C
     Dosage: 200 MG, UNK
  4. LISINOPRIL [Concomitant]
     Dosage: 2.5 MG, UNK
  5. FUROSEMIDE [Concomitant]
     Dosage: 40 MG, UNK
  6. AMLODIPINE [Concomitant]
     Dosage: 2.5 MG, UNK

REACTIONS (3)
  - Cough [Unknown]
  - Rash erythematous [Unknown]
  - Anaemia [Unknown]
